FAERS Safety Report 14073261 (Version 1)
Quarter: 2017Q4

REPORT INFORMATION
  Report Type: Spontaneous
  Country: FR (occurrence: FR)
  Receive Date: 20171011
  Receipt Date: 20171011
  Transmission Date: 20180321
  Serious: Yes (Hospitalization)
  Sender: FDA-Public Use
  Company Number: FR-ALLERGAN-1757128US

PATIENT
  Sex: Female

DRUGS (4)
  1. LEVOTHYROX [Suspect]
     Active Substance: LEVOTHYROXINE
     Indication: PRODUCT USED FOR UNKNOWN INDICATION
     Dosage: 50 ?G, SINGLE
     Route: 048
     Dates: start: 20170922, end: 20170922
  2. DEPAKINE CHRONO [Suspect]
     Active Substance: VALPROATE SODIUM
     Indication: PRODUCT USED FOR UNKNOWN INDICATION
     Dosage: 500 MG, SINGLE
     Route: 048
     Dates: start: 20170922, end: 20170922
  3. ESCITALOPRAM OXALATE - BP [Suspect]
     Active Substance: ESCITALOPRAM OXALATE
     Indication: PRODUCT USED FOR UNKNOWN INDICATION
     Dosage: 20 MG, SINGLE
     Route: 048
     Dates: start: 20170922, end: 20170922
  4. CHONDROSULF [Suspect]
     Active Substance: CHONDROITIN SULFATE (CHICKEN)
     Indication: PRODUCT USED FOR UNKNOWN INDICATION
     Dosage: 400 MG, SINGLE
     Route: 048
     Dates: start: 20170922, end: 20170922

REACTIONS (3)
  - Acute pulmonary oedema [Unknown]
  - Oxygen saturation decreased [Unknown]
  - Wrong patient received medication [Unknown]

NARRATIVE: CASE EVENT DATE: 20170922
